FAERS Safety Report 19647410 (Version 1)
Quarter: 2021Q3

REPORT INFORMATION
  Report Type: Report from Study
  Country: IT (occurrence: IT)
  Receive Date: 20210802
  Receipt Date: 20210802
  Transmission Date: 20211014
  Serious: Yes (Hospitalization)
  Sender: FDA-Public Use
  Company Number: IT-DSJP-DSE-2021-123345

PATIENT
  Age: 80 Year
  Sex: Female
  Weight: 60 kg

DRUGS (5)
  1. SOTALOL. [Concomitant]
     Active Substance: SOTALOL
     Indication: HYPERTENSIVE HEART DISEASE
     Dosage: 80 MG
     Route: 048
  2. LIXIANA [Suspect]
     Active Substance: EDOXABAN TOSYLATE
     Indication: ATRIAL FIBRILLATION
     Dosage: 60 MG, QD
     Route: 048
  3. COLECALCIFEROL [Concomitant]
     Active Substance: CHOLECALCIFEROL
     Indication: OSTEOPOROSIS
     Dosage: 25000 KIU
     Route: 048
  4. SIMVASTATIN. [Concomitant]
     Active Substance: SIMVASTATIN
     Indication: HYPERCHOLESTEROLAEMIA
     Dosage: 20 MG
     Route: 048
  5. PANTOPRAZOLE [Concomitant]
     Active Substance: PANTOPRAZOLE
     Indication: ANTACID THERAPY
     Dosage: 20 MG
     Route: 048

REACTIONS (6)
  - Rectal haemorrhage [Recovering/Resolving]
  - Iron deficiency [Recovering/Resolving]
  - Weight decreased [Recovering/Resolving]
  - Peripheral coldness [Recovering/Resolving]
  - Moaning [Recovering/Resolving]
  - Haematoma [Recovering/Resolving]

NARRATIVE: CASE EVENT DATE: 20210606
